FAERS Safety Report 10642605 (Version 1)
Quarter: 2014Q4

REPORT INFORMATION
  Report Type: Spontaneous
  Country: US (occurrence: None)
  Receive Date: 20141208
  Receipt Date: 20141208
  Transmission Date: 20150529
  Serious: Yes (Life-Threatening, Hospitalization, Disabling, Other)
  Sender: FDA-Public Use
  Company Number: None

PATIENT
  Age: 23 Year
  Sex: Female
  Weight: 80.29 kg

DRUGS (1)
  1. PHENTERMINE [Suspect]
     Active Substance: PHENTERMINE
     Dosage: 1, ONCE DAILY., TAKEN BY MOUTH
     Route: 048

REACTIONS (3)
  - Generalised tonic-clonic seizure [None]
  - Epilepsy [None]
  - Petit mal epilepsy [None]
